FAERS Safety Report 5521964-9 (Version None)
Quarter: 2007Q4

REPORT INFORMATION
  Report Type: 
  Country: None (occurrence: None)
  Receive Date: 20071120
  Receipt Date: 20070621
  Transmission Date: 20080405
  Serious: No
  Sender: FDA-Public Use
  Company Number: US-BRISTOL-MYERS SQUIBB COMPANY-13798111

PATIENT
  Age: 52 Year
  Sex: Female

DRUGS (1)
  1. AVALIDE [Suspect]
     Indication: HYPERTENSION
     Route: 048
     Dates: start: 20060826, end: 20070512

REACTIONS (1)
  - LICHEN PLANUS [None]
